FAERS Safety Report 8613136-6 (Version None)
Quarter: 2012Q3

REPORT INFORMATION
  Report Type: 
  Country: None (occurrence: None)
  Receive Date: 20120822
  Receipt Date: 20120731
  Transmission Date: 20120928
  Serious: Yes (Other)
  Sender: FDA-Public Use
  Company Number: JP-009507513-1208JPN000351

PATIENT

DRUGS (13)
  1. TELAVIC [Suspect]
     Dosage: 2000 MG, ONCE
     Route: 048
     Dates: start: 20120618, end: 20120618
  2. REBETOL [Suspect]
     Indication: HEPATITIS C
     Dosage: 600 MG, ONCE
     Route: 048
     Dates: start: 20120604, end: 20120707
  3. TELAVIC [Suspect]
     Indication: HEPATITIS C
     Dosage: 2250 MG, ONCE
     Route: 048
     Dates: start: 20120604, end: 20120617
  4. LANSOPRAZOLE [Concomitant]
     Dosage: UNK
     Route: 048
     Dates: end: 20120707
  5. ALLOPURINOL [Suspect]
     Dosage: 300 MG, ONCE
     Route: 048
     Dates: start: 20120606, end: 20120707
  6. PREDNISOLONE [Concomitant]
     Dosage: UNK
     Dates: start: 20120713, end: 20120713
  7. TALION (BEPOTASTINE BESYLATE) [Concomitant]
     Dosage: 20 MG, ONCE
     Route: 048
     Dates: start: 20120713, end: 20120713
  8. VOLTAREN [Concomitant]
     Route: 054
  9. ALLOPURINOL [Suspect]
     Dosage: 200 MG, ONCE
     Route: 048
     Dates: start: 20120604
  10. TELAVIC [Suspect]
     Dosage: 1500 MG, ONCE
     Route: 048
     Dates: start: 20120619, end: 20120707
  11. PEG-INTRON [Suspect]
     Indication: HEPATITIS C
     Dosage: 1.5MCG/KG
     Route: 058
     Dates: start: 20120604, end: 20120702
  12. JUVELA [Concomitant]
     Dosage: PAINFUL POINT IN DIGITI PEDIS AND FUSSOHLE
     Route: 061
  13. RIKKUNSHI-TO [Concomitant]
     Dosage: UNK
     Route: 048
     Dates: end: 20120707

REACTIONS (4)
  - AMYLASE INCREASED [None]
  - PANCREATITIS [None]
  - RENAL IMPAIRMENT [None]
  - DRUG ERUPTION [None]
